FAERS Safety Report 8921824 (Version 6)
Quarter: 2016Q2

REPORT INFORMATION
  Report Type: Report from Study
  Country: DE (occurrence: DE)
  Receive Date: 20121121
  Receipt Date: 20160524
  Transmission Date: 20160815
  Serious: Yes (Death, Other)
  Sender: FDA-Public Use
  Company Number: DE-ROCHE-1156560

PATIENT
  Age: 56 Year
  Sex: Male
  Weight: 113 kg

DRUGS (14)
  1. DEXAMETHASONE. [Concomitant]
     Active Substance: DEXAMETHASONE
     Indication: B-CELL LYMPHOMA
     Dosage: R-DHAP SCHEDULE
     Route: 065
     Dates: start: 20131104, end: 20131126
  2. DEXAMETHASONE. [Concomitant]
     Active Substance: DEXAMETHASONE
     Dosage: DEXA-BEAM SCHEDULE
     Route: 065
     Dates: start: 20131219
  3. CISPLATIN. [Concomitant]
     Active Substance: CISPLATIN
     Indication: B-CELL LYMPHOMA
     Dosage: R-DHAP SCHEDULE
     Route: 065
     Dates: start: 20131104, end: 20131126
  4. MELPHALAN [Concomitant]
     Active Substance: MELPHALAN
     Indication: B-CELL LYMPHOMA
     Dosage: DEXA-BEAM SCHEDULE
     Route: 065
     Dates: start: 20131219
  5. RITUXIMAB [Suspect]
     Active Substance: RITUXIMAB
     Dosage: ACCORDING TO THE PCYC-1127-CA STUDY PROTOCOL
     Route: 042
     Dates: start: 201508
  6. RITUXIMAB [Suspect]
     Active Substance: RITUXIMAB
     Indication: B-CELL LYMPHOMA
     Dosage: MAINTENANCE TREATMENT
     Route: 042
     Dates: start: 20111011, end: 20130122
  7. CYTARABINE. [Concomitant]
     Active Substance: CYTARABINE
     Indication: B-CELL LYMPHOMA
     Dosage: R-DHAP SCHEDULE
     Route: 065
     Dates: start: 20131104, end: 20131126
  8. RITUXIMAB [Suspect]
     Active Substance: RITUXIMAB
     Indication: B-CELL SMALL LYMPHOCYTIC LYMPHOMA
     Dosage: 750 MG?DATE OF LAST DOSE OF RITUXIMAB PRIOR TO SAE: 20/NOV/2012
     Route: 042
     Dates: start: 20110419, end: 20110915
  9. BENDAMUSTINE [Concomitant]
     Active Substance: BENDAMUSTINE
     Indication: B-CELL SMALL LYMPHOCYTIC LYMPHOMA
     Dosage: 6 CYCLES
     Route: 042
     Dates: start: 20110420, end: 20110917
  10. BENDAMUSTINE [Concomitant]
     Active Substance: BENDAMUSTINE
     Indication: B-CELL LYMPHOMA
  11. ETOPOSID [Concomitant]
     Active Substance: ETOPOSIDE
     Indication: B-CELL LYMPHOMA
     Dosage: DEXA-BEAM SCHEDULE
     Route: 065
     Dates: start: 20131219
  12. BICNU [Concomitant]
     Active Substance: CARMUSTINE
     Indication: B-CELL LYMPHOMA
     Dosage: DEXA-BEAM SCHEDULE
     Route: 065
     Dates: start: 20131219
  13. RITUXIMAB [Suspect]
     Active Substance: RITUXIMAB
     Dosage: R-DHAP SCHEDULE
     Route: 042
     Dates: start: 20131126, end: 201312
  14. CYTARABINE. [Concomitant]
     Active Substance: CYTARABINE
     Dosage: DEXA-BEAM SCHEDULE
     Route: 065
     Dates: start: 20131219

REACTIONS (8)
  - Brain stem haemorrhage [Fatal]
  - Neoplasm skin [Recovered/Resolved]
  - Hyperglycaemia [Unknown]
  - Evans syndrome [Unknown]
  - Squamous cell carcinoma of skin [Recovered/Resolved]
  - Acute myocardial infarction [Unknown]
  - Fatigue [Unknown]
  - Malignant neoplasm progression [Unknown]

NARRATIVE: CASE EVENT DATE: 20120209
